FAERS Safety Report 4622391-9 (Version None)
Quarter: 2005Q1

REPORT INFORMATION
  Report Type: 
  Country: None (occurrence: None)
  Receive Date: 20050328
  Receipt Date: 20050314
  Transmission Date: 20050727
  Serious: Yes (Other)
  Sender: FDA-Public Use
  Company Number: 230010M05GBR

PATIENT
  Sex: Female

DRUGS (1)
  1. REBIF [Suspect]
     Dosage: 3 IN 1 WEEKS, SUBCUTANEOUS
     Route: 058

REACTIONS (1)
  - ACUTE PSYCHOSIS [None]
